FAERS Safety Report 6237698-1 (Version None)
Quarter: 2009Q2

REPORT INFORMATION
  Report Type: 
  Country: None (occurrence: None)
  Receive Date: 20090617
  Receipt Date: 20090611
  Transmission Date: 20091009
  Serious: Yes (Death)
  Sender: FDA-Public Use
  Company Number: 20096861

PATIENT
  Age: 7 Year
  Sex: Male

DRUGS (1)
  1. LIORESAL [Suspect]
     Indication: MUSCLE SPASTICITY
     Dosage: 409.9 MCG, DAILY; INTRATHECAL
     Route: 037

REACTIONS (6)
  - COGNITIVE DISORDER [None]
  - CONVULSION [None]
  - HYPERTONIA [None]
  - MULTI-ORGAN FAILURE [None]
  - RESPIRATORY DISORDER [None]
  - RESTRICTIVE PULMONARY DISEASE [None]
